FAERS Safety Report 9594234 (Version 1)
Quarter: 2013Q3

REPORT INFORMATION
  Report Type: Spontaneous
  Country: US (occurrence: None)
  Receive Date: 20130930
  Receipt Date: 20130930
  Transmission Date: 20140515
  Serious: Yes (Other)
  Sender: FDA-Public Use
  Company Number: 1000048212

PATIENT
  Age: 50 Year
  Sex: Female

DRUGS (1)
  1. LINZESS [Suspect]
     Indication: CONSTIPATION
     Dosage: 290 MCG (290 MCG, 1 IN 1 D), ORAL
     Route: 048

REACTIONS (6)
  - Nausea [None]
  - Hot flush [None]
  - Headache [None]
  - Skin burning sensation [None]
  - Pain [None]
  - Epistaxis [None]
